FAERS Safety Report 8190305-3 (Version None)
Quarter: 2012Q1

REPORT INFORMATION
  Report Type: 
  Country: None (occurrence: None)
  Receive Date: 20120307
  Receipt Date: 20120222
  Transmission Date: 20120608
  Serious: Yes (Hospitalization)
  Sender: FDA-Public Use
  Company Number: JP-MYLANLABS-2012S1001298

PATIENT
  Age: 59 Year
  Weight: 58.4 kg

DRUGS (13)
  1. IOMERON-150 [Suspect]
     Route: 013
     Dates: start: 20120111, end: 20120111
  2. EPIRUBICIN [Suspect]
     Indication: HEPATIC NEOPLASM MALIGNANT
     Route: 013
     Dates: start: 20111012, end: 20111012
  3. EPIRUBICIN [Suspect]
     Route: 013
     Dates: start: 20120111, end: 20120111
  4. RABEPRAZOLE SODIUM [Concomitant]
     Indication: CHRONIC HEPATITIS
     Route: 048
     Dates: start: 20111013
  5. CEFAZOLIN [Suspect]
     Indication: POST EMBOLISATION SYNDROME
     Route: 041
     Dates: start: 20120111, end: 20120115
  6. GOODMIN [Concomitant]
     Indication: INSOMNIA
     Route: 048
  7. ALBUMIN (HUMAN) [Concomitant]
     Indication: PRODUCT USED FOR UNKNOWN INDICATION
     Dosage: TREATMENT AFTER TACE
     Route: 042
     Dates: start: 20120116, end: 20120118
  8. IOMERON-150 [Suspect]
     Indication: HEPATIC NEOPLASM MALIGNANT
     Route: 013
     Dates: start: 20111012, end: 20111012
  9. NASPALUN [Suspect]
     Indication: HEPATIC NEOPLASM MALIGNANT
     Route: 041
     Dates: start: 20120116, end: 20120129
  10. URSO /00465701/ [Concomitant]
     Indication: CHRONIC HEPATITIS
     Route: 048
  11. STRONGER NEO MINOPHAGEN C [Concomitant]
     Indication: PRODUCT USED FOR UNKNOWN INDICATION
     Dosage: TREATMENT AFTER TACE
     Route: 042
     Dates: start: 20120111, end: 20120118
  12. VOLTAREN [Concomitant]
     Indication: PAIN
     Route: 054
     Dates: start: 20120115
  13. TSU-68 [Concomitant]
     Indication: HEPATIC NEOPLASM MALIGNANT
     Route: 048
     Dates: start: 20111108, end: 20120109

REACTIONS (1)
  - RENAL IMPAIRMENT [None]
